FAERS Safety Report 4357778-5 (Version None)
Quarter: 2004Q2

REPORT INFORMATION
  Report Type: 
  Country: None (occurrence: None)
  Receive Date: 20040512
  Receipt Date: 20040427
  Transmission Date: 20050107
  Serious: Yes (Hospitalization, Other)
  Sender: FDA-Public Use
  Company Number: HQWYE665430APR04

PATIENT
  Age: 70 Year
  Sex: Female

DRUGS (1)
  1. PREMPRO [Suspect]
     Indication: OSTEOPOROSIS
     Dosage: 0.625MG/2.5 MG, ORAL
     Route: 048

REACTIONS (2)
  - CONDITION AGGRAVATED [None]
  - IDIOPATHIC THROMBOCYTOPENIC PURPURA [None]
